FAERS Safety Report 13104806 (Version 2)
Quarter: 2017Q1

REPORT INFORMATION
  Report Type: Spontaneous
  Country: US (occurrence: US)
  Receive Date: 20170111
  Receipt Date: 20170227
  Transmission Date: 20170428
  Serious: No
  Sender: FDA-Public Use
  Company Number: US-PFIZER INC-2017009274

PATIENT
  Age: 68 Year
  Sex: Female

DRUGS (1)
  1. TRIAZOLAM. [Suspect]
     Active Substance: TRIAZOLAM
     Indication: INSOMNIA
     Dosage: 0.25 MG, 1X/DAY; 0.25 MG, TABLET, ORALLY AND ONCE A DAY
     Route: 048
     Dates: start: 201502

REACTIONS (1)
  - Drug ineffective [Unknown]
